FAERS Safety Report 9691331 (Version 2)
Quarter: 2013Q4

REPORT INFORMATION
  Report Type: Report from Study
  Country: CA (occurrence: CA)
  Receive Date: 20131115
  Receipt Date: 20131115
  Transmission Date: 20140711
  Serious: Yes (Hospitalization, Other)
  Sender: FDA-Public Use
  Company Number: CA-ABBVIE-12P-028-0939570-00

PATIENT
  Age: 13 Year
  Sex: Male

DRUGS (2)
  1. HUMIRA [Suspect]
     Indication: CROHN^S DISEASE
     Route: 058
     Dates: start: 20110412, end: 2012
  2. HUMIRA [Suspect]
     Dates: start: 20131102

REACTIONS (7)
  - Anorectal disorder [Not Recovered/Not Resolved]
  - Anorectal disorder [Recovered/Resolved]
  - Gastrointestinal stoma complication [Recovered/Resolved]
  - Fistula [Recovered/Resolved]
  - Fistula [Recovering/Resolving]
  - Abscess [Recovered/Resolved]
  - Impaired healing [Unknown]
